FAERS Safety Report 16673140 (Version 1)
Quarter: 2019Q3

REPORT INFORMATION
  Report Type: Spontaneous
  Country: US (occurrence: US)
  Receive Date: 20190805
  Receipt Date: 20190805
  Transmission Date: 20191004
  Serious: Yes (Death)
  Sender: FDA-Public Use
  Company Number: None

PATIENT
  Age: 33 Year
  Sex: Female
  Weight: 76.5 kg

DRUGS (1)
  1. CYTOTEC [Suspect]
     Active Substance: MISOPROSTOL
     Indication: LABOUR INDUCTION
     Dosage: ?          QUANTITY:1 TABLET(S);?
     Route: 067
     Dates: start: 20190422

REACTIONS (3)
  - Foetal death [None]
  - Labour induction [None]
  - Birth trauma [None]
